FAERS Safety Report 8602037-5 (Version None)
Quarter: 2012Q3

REPORT INFORMATION
  Report Type: 
  Country: None (occurrence: None)
  Receive Date: 20120817
  Receipt Date: 20120810
  Transmission Date: 20120928
  Serious: Yes (Hospitalization)
  Sender: FDA-Public Use
  Company Number: CA-PFIZER INC-2012197070

PATIENT
  Sex: Male

DRUGS (6)
  1. FUROSEMIDE [Concomitant]
     Indication: HYPERTENSION
  2. FUROSEMIDE [Concomitant]
     Indication: DIURETIC THERAPY
     Dosage: UNK
  3. SUTENT [Suspect]
     Dosage: 37.5 MG, UNK
  4. LEVEMIR [Concomitant]
     Indication: DIABETES MELLITUS
     Dosage: UNK
  5. SUTENT [Suspect]
     Indication: RENAL CELL CARCINOMA
     Dosage: 50 MG, UNK
     Dates: start: 20090101
  6. ZYLOPRIM [Concomitant]
     Dosage: UNK

REACTIONS (2)
  - BACK PAIN [None]
  - MULTI-ORGAN FAILURE [None]
